FAERS Safety Report 17466762 (Version 2)
Quarter: 2020Q1

REPORT INFORMATION
  Report Type: Report from Study
  Country: BD (occurrence: BD)
  Receive Date: 20200227
  Receipt Date: 20200303
  Transmission Date: 20200409
  Serious: Yes (Death, Hospitalization)
  Sender: FDA-Public Use
  Company Number: NVSC2020BD052088

PATIENT
  Age: 25 Year
  Sex: Male
  Weight: 54 kg

DRUGS (1)
  1. SANDIMMUN NEORAL [Suspect]
     Active Substance: CYCLOSPORINE
     Indication: ACUTE LEUKAEMIA
     Dosage: UNK UNK, BID
     Route: 048
     Dates: start: 20200115

REACTIONS (1)
  - Peripheral swelling [Fatal]

NARRATIVE: CASE EVENT DATE: 20200202
